FAERS Safety Report 8887385 (Version 4)
Quarter: 2016Q1

REPORT INFORMATION
  Report Type: Spontaneous
  Country: FR (occurrence: FR)
  Receive Date: 20121105
  Receipt Date: 20160205
  Transmission Date: 20160526
  Serious: Yes (Life-Threatening, Hospitalization, Other)
  Sender: FDA-Public Use
  Company Number: FR-BRISTOL-MYERS SQUIBB COMPANY-17078809

PATIENT
  Age: 55 Year
  Sex: Female

DRUGS (6)
  1. AKINETON [Suspect]
     Active Substance: BIPERIDEN HYDROCHLORIDE
     Indication: PRODUCT USED FOR UNKNOWN INDICATION
     Dosage: TABS
     Route: 048
     Dates: end: 201210
  2. RISPERDAL [Suspect]
     Active Substance: RISPERIDONE
     Indication: PSYCHOTIC DISORDER
     Dosage: SCORED FILM TABS 2MG
     Route: 048
     Dates: start: 2012, end: 201210
  3. ABILIFY [Suspect]
     Active Substance: ARIPIPRAZOLE
     Indication: PSYCHOTIC DISORDER
     Dosage: FROM 2MAY2006- 2 YEARS BACK: 10MG/DAY, THEN 20MG/DAY
     Route: 048
     Dates: start: 20060502, end: 201210
  4. LAROXYL [Suspect]
     Active Substance: AMITRIPTYLINE
     Indication: DEPRESSION
     Dosage: TABS, 100MG DAILY
     Route: 048
     Dates: end: 201210
  5. MOPRAL [Suspect]
     Active Substance: OMEPRAZOLE SODIUM
     Indication: GASTRODUODENAL ULCER
     Dosage: TABS
     Route: 048
     Dates: end: 201210
  6. HEPT A MYL [Suspect]
     Active Substance: HEPTAMINOL HYDROCHLORIDE
     Indication: HYPERTENSION
     Dosage: 1DF= 2X187.8MG
     Route: 048
     Dates: end: 201210

REACTIONS (2)
  - Colitis ischaemic [Recovered/Resolved]
  - Off label use [Unknown]

NARRATIVE: CASE EVENT DATE: 20121010
